FAERS Safety Report 5065828-6 (Version None)
Quarter: 2006Q3

REPORT INFORMATION
  Report Type: 
  Country: None (occurrence: None)
  Receive Date: 20060731
  Receipt Date: 20060628
  Transmission Date: 20061208
  Serious: Yes (Other)
  Sender: FDA-Public Use
  Company Number: PHBS2006JP09656

PATIENT
  Age: 6 Year
  Sex: Female

DRUGS (3)
  1. GLEEVEC [Suspect]
     Indication: ACUTE LYMPHOCYTIC LEUKAEMIA
     Dosage: UNK, UNK
     Route: 048
  2. DAUNOMYCIN [Concomitant]
     Route: 042
  3. ADRIAMYCIN PFS [Concomitant]
     Route: 042

REACTIONS (1)
  - ELECTROCARDIOGRAM ST-T SEGMENT ABNORMAL [None]
